FAERS Safety Report 5346027-7 (Version None)
Quarter: 2007Q2

REPORT INFORMATION
  Report Type: 
  Country: None (occurrence: None)
  Receive Date: 20070605
  Receipt Date: 20070525
  Transmission Date: 20071010
  Serious: Yes (Other)
  Sender: FDA-Public Use
  Company Number: US-ROCHE-499567

PATIENT
  Age: 45 Year
  Sex: Female
  Weight: 56.7 kg

DRUGS (6)
  1. BONIVA [Suspect]
     Indication: OSTEOPENIA
     Route: 048
     Dates: start: 20050801
  2. FEMARA [Concomitant]
     Indication: BREAST CANCER
  3. CADUET [Concomitant]
  4. FLONASE [Concomitant]
  5. CALCIUM SUPPLEMENTS [Concomitant]
     Indication: OSTEOPENIA
     Dosage: PATIENT TAKES APPROXIMATELY 1500MG PER DAY.
  6. VAGIFEM [Concomitant]
     Dosage: REPORTED AS VAGINAL TABLETS

REACTIONS (1)
  - HYPERTHYROIDISM [None]
